FAERS Safety Report 5865152-5 (Version None)
Quarter: 2008Q3

REPORT INFORMATION
  Report Type: 
  Country: None (occurrence: None)
  Receive Date: 20080829
  Receipt Date: 20080821
  Transmission Date: 20090109
  Serious: Yes (Hospitalization)
  Sender: FDA-Public Use
  Company Number: A0745047A

PATIENT
  Age: 64 Year
  Sex: Female
  Weight: 116.8 kg

DRUGS (1)
  1. AVANDIA [Suspect]
     Dosage: 4MG PER DAY
     Dates: start: 20000301, end: 20060201

REACTIONS (1)
  - MYOCARDIAL INFARCTION [None]
